FAERS Safety Report 10953124 (Version 1)
Quarter: 2015Q1

REPORT INFORMATION
  Report Type: Spontaneous
  Country: US (occurrence: US)
  Receive Date: 20150325
  Receipt Date: 20150325
  Transmission Date: 20150721
  Serious: No
  Sender: FDA-Public Use
  Company Number: US-ASTRAZENECA-2013SE32481

PATIENT
  Age: 53 Year
  Sex: Female
  Weight: 72.6 kg

DRUGS (7)
  1. ESTRADOL [Concomitant]
     Indication: FEMALE SEX HORMONE LEVEL
  2. OMEGA 3 [Concomitant]
     Active Substance: OMEGA-3 FATTY ACIDS
  3. ASPIRIN. [Concomitant]
     Active Substance: ASPIRIN
  4. VITAMINS [Concomitant]
     Active Substance: VITAMINS
  5. GLUCOPHAGE [Concomitant]
     Active Substance: METFORMIN HYDROCHLORIDE
     Indication: BLOOD GLUCOSE INCREASED
  6. BYDUREON [Suspect]
     Active Substance: EXENATIDE
     Route: 058
     Dates: start: 2012
  7. BYETTA [Suspect]
     Active Substance: EXENATIDE
     Route: 058
     Dates: start: 2012

REACTIONS (5)
  - Increased appetite [Not Recovered/Not Resolved]
  - Weight decreased [Recovered/Resolved]
  - Injection site bruising [Unknown]
  - Weight increased [Not Recovered/Not Resolved]
  - Hunger [Not Recovered/Not Resolved]

NARRATIVE: CASE EVENT DATE: 2012
